FAERS Safety Report 23407261 (Version 1)
Quarter: 2024Q1

REPORT INFORMATION
  Report Type: Spontaneous
  Country: US (occurrence: US)
  Receive Date: 20240116
  Receipt Date: 20240116
  Transmission Date: 20240410
  Serious: No
  Sender: FDA-Public Use
  Company Number: US-NOVOPROD-1141516

PATIENT
  Age: 72 Year
  Sex: Female

DRUGS (1)
  1. SEMAGLUTIDE [Suspect]
     Active Substance: SEMAGLUTIDE
     Indication: Weight control
     Dosage: 0.25
     Route: 058
     Dates: end: 20230912

REACTIONS (5)
  - Alanine aminotransferase increased [Recovered/Resolved]
  - Increased appetite [Unknown]
  - Weight increased [Unknown]
  - Suspected counterfeit product [Unknown]
  - Product use in unapproved indication [Unknown]
